FAERS Safety Report 23483854 (Version 1)
Quarter: 2024Q1

REPORT INFORMATION
  Report Type: Spontaneous
  Country: JP (occurrence: JP)
  Receive Date: 20240205
  Receipt Date: 20240205
  Transmission Date: 20240410
  Serious: Yes (Death, Life-Threatening, Hospitalization, Other)
  Sender: FDA-Public Use
  Company Number: JP-GSKJP-JP2024JPN012041AA

PATIENT
  Age: 3 Year
  Sex: Male
  Weight: 10 kg

DRUGS (24)
  1. BOTOX [Suspect]
     Active Substance: ONABOTULINUMTOXINA
     Indication: Muscle spasms
     Dosage: TIME INTERVAL: AS NECESSARY
     Route: 030
  2. TIZANIDINE [Suspect]
     Active Substance: TIZANIDINE
     Indication: Muscle tone disorder
     Route: 065
  3. LEVETIRACETAM [Suspect]
     Active Substance: LEVETIRACETAM
     Indication: Epilepsy
     Route: 065
  4. AMMONIUM GLYCYRRHIZATE [Suspect]
     Active Substance: AMMONIUM GLYCYRRHIZATE
     Indication: Product used for unknown indication
     Route: 065
  5. CELLCEPT [Concomitant]
     Active Substance: MYCOPHENOLATE MOFETIL
     Indication: Product used for unknown indication
  6. SODIUM BICARBONATE [Suspect]
     Active Substance: SODIUM BICARBONATE
     Indication: Product used for unknown indication
     Route: 065
  7. FAMOTIDINE [Concomitant]
     Active Substance: FAMOTIDINE
     Indication: Product used for unknown indication
  8. LANSOPRAZOLE [Concomitant]
     Active Substance: LANSOPRAZOLE
     Indication: Product used for unknown indication
  9. SODIUM GUALENATE [Suspect]
     Active Substance: SODIUM GUALENATE
     Indication: Gastric ulcer
     Route: 065
  10. SODIUM HYALURONATE [Suspect]
     Active Substance: HYALURONATE SODIUM
     Indication: Product used for unknown indication
     Route: 065
  11. PREDNISOLONE [Suspect]
     Active Substance: PREDNISOLONE
     Indication: Product used for unknown indication
     Route: 065
  12. PULMICORT TURBUHALER [Suspect]
     Active Substance: BUDESONIDE
     Indication: Asthma
     Route: 065
  13. SUCRALFATE [Suspect]
     Active Substance: SUCRALFATE
     Indication: Gastric ulcer
     Route: 065
  14. BACLOFEN [Suspect]
     Active Substance: BACLOFEN
     Indication: Muscle spasms
     Route: 065
  15. NITROFURANTOIN [Concomitant]
     Active Substance: NITROFURANTOIN
     Indication: Product used for unknown indication
  16. PYRIDOXAL [Concomitant]
     Active Substance: PYRIDOXAL
     Indication: Product used for unknown indication
  17. SINGULAIR [Suspect]
     Active Substance: MONTELUKAST SODIUM
     Indication: Asthma
     Route: 065
  18. ZONISAMIDE [Suspect]
     Active Substance: ZONISAMIDE
     Indication: Epilepsy
     Route: 065
  19. URSODIOL [Suspect]
     Active Substance: URSODIOL
     Indication: Product used for unknown indication
     Route: 065
  20. PROGRAF [Suspect]
     Active Substance: TACROLIMUS
     Indication: Liver transplant
     Route: 065
  21. CEFEPIME [Concomitant]
     Active Substance: CEFEPIME HYDROCHLORIDE
     Indication: Product used for unknown indication
  22. BISOLVON [Concomitant]
     Active Substance: BROMHEXINE HYDROCHLORIDE
     Indication: Product used for unknown indication
  23. SULFAMETHOXAZOLE AND TRIMETHOPRIM [Concomitant]
     Active Substance: SULFAMETHOXAZOLE\TRIMETHOPRIM
     Indication: Product used for unknown indication
  24. RIVOTRIL [Suspect]
     Active Substance: CLONAZEPAM
     Indication: Epilepsy
     Route: 065

REACTIONS (27)
  - White blood cells urine positive [Fatal]
  - Nasopharyngitis [Fatal]
  - Liver transplant rejection [Fatal]
  - White blood cell count decreased [Fatal]
  - Aspartate aminotransferase increased [Fatal]
  - Infection [Fatal]
  - Hepatic function abnormal [Fatal]
  - Urinary tract infection [Fatal]
  - Culture urine positive [Fatal]
  - Respiratory tract infection [Fatal]
  - Status epilepticus [Fatal]
  - Clonic convulsion [Fatal]
  - Drug-induced liver injury [Fatal]
  - Disseminated intravascular coagulation [Fatal]
  - Alanine aminotransferase increased [Fatal]
  - Transfusion [Fatal]
  - Respiratory failure [Fatal]
  - Pneumonia aspiration [Fatal]
  - Hypercapnia [Fatal]
  - Pyrexia [Fatal]
  - Antineutrophil cytoplasmic antibody positive [Fatal]
  - Epilepsy [Fatal]
  - Multiple organ dysfunction syndrome [Fatal]
  - Tracheal haemorrhage [Fatal]
  - Radius fracture [Fatal]
  - Neutrophil count decreased [Fatal]
  - Autoimmune neutropenia [Fatal]

NARRATIVE: CASE EVENT DATE: 20150617
